FAERS Safety Report 21485869 (Version 1)
Quarter: 2022Q4

REPORT INFORMATION
  Report Type: Spontaneous
  Country: NL (occurrence: NL)
  Receive Date: 20221020
  Receipt Date: 20221020
  Transmission Date: 20230113
  Serious: Yes (Other)
  Sender: FDA-Public Use
  Company Number: NL-SLATE RUN PHARMACEUTICALS-22NL001383

PATIENT

DRUGS (4)
  1. BIVALIRUDIN [Suspect]
     Active Substance: BIVALIRUDIN
     Indication: Maternal exposure timing unspecified
     Dosage: 0.22 MILLIGRAM PER KILOGRAM, EVERY HOUR
  2. BIVALIRUDIN [Suspect]
     Active Substance: BIVALIRUDIN
     Dosage: 0.15 MILLIGRAM PER KILOGRAM, EVERY HOUR
  3. HEPARIN [Concomitant]
     Active Substance: HEPARIN SODIUM
     Indication: Maternal exposure timing unspecified
     Dosage: 32.9 INTERNATIONAL UNIT PER KILOGRAM, EVERY HOUR
  4. HEPARIN [Concomitant]
     Active Substance: HEPARIN SODIUM
     Dosage: 12 INTERNATIONAL UNIT PER KILOGRAM, EVERY HOUR

REACTIONS (2)
  - Premature baby [Recovered/Resolved]
  - Foetal exposure during pregnancy [Recovered/Resolved]
